FAERS Safety Report 23269052 (Version 2)
Quarter: 2023Q4

REPORT INFORMATION
  Report Type: Spontaneous
  Country: CA (occurrence: CA)
  Receive Date: 20231206
  Receipt Date: 20231208
  Transmission Date: 20240110
  Serious: Yes (Other)
  Sender: FDA-Public Use
  Company Number: CA-KAMADA LIMITED-2023-KAM-CA000270

PATIENT

DRUGS (3)
  1. KAMRAB [Suspect]
     Active Substance: HUMAN RABIES VIRUS IMMUNE GLOBULIN
     Indication: Immunisation
     Dosage: 2.37 ML, SINGLE
     Route: 065
  2. RABAVERT [Concomitant]
     Active Substance: RABIES VIRUS STRAIN FLURY LEP ANTIGEN (PROPIOLACTONE INACTIVATED)
     Indication: Rabies immunisation
     Dosage: UNK
     Route: 030
  3. KETAMINE [Concomitant]
     Active Substance: KETAMINE
     Dosage: UNK
     Route: 065

REACTIONS (2)
  - Rash [Recovered/Resolved]
  - Rash papular [Recovered/Resolved]
